FAERS Safety Report 4678726-4 (Version None)
Quarter: 2005Q2

REPORT INFORMATION
  Report Type: 
  Country: None (occurrence: None)
  Receive Date: 20050119
  Receipt Date: 20050119
  Transmission Date: 20051028
  Serious: No
  Sender: FDA-Public Use
  Company Number: None

PATIENT

DRUGS (5)
  1. SOMA GENERIC 350 MG [Suspect]
     Indication: BACK PAIN
     Dosage: 1 PO BID
     Route: 048
     Dates: start: 20020109
  2. SOMA GENERIC 350 MG [Suspect]
     Indication: SPINAL CORD DISORDER
     Dosage: 1 PO BID
     Route: 048
     Dates: start: 20020109
  3. VIOXX [Concomitant]
  4. METHADONE [Concomitant]
  5. KLONAPIN [Concomitant]

REACTIONS (2)
  - DRUG EFFECT DECREASED [None]
  - THERAPEUTIC RESPONSE UNEXPECTED WITH DRUG SUBSTITUTION [None]
